FAERS Safety Report 10019776 (Version 1)
Quarter: 2014Q1

REPORT INFORMATION
  Report Type: Spontaneous
  Country: US (occurrence: US)
  Receive Date: 20140318
  Receipt Date: 20140318
  Transmission Date: 20141002
  Serious: No
  Sender: FDA-Public Use
  Company Number: US-GALDERMA-US13004091

PATIENT
  Age: 70 Year
  Sex: Female

DRUGS (12)
  1. MIRVASO (BRIMONIDINE) TOPICAL GEL, 0.33% [Suspect]
     Indication: ROSACEA
     Dosage: 0.33%
     Route: 061
  2. LOSARTAN [Concomitant]
     Indication: HYPERTENSION
     Dosage: 25 MG
     Route: 048
  3. ASPIRIN [Concomitant]
     Dosage: 80 MG
     Route: 048
  4. SULINDAC [Concomitant]
     Indication: ARTHRITIS
     Dosage: 200 MG
     Route: 048
  5. EVISTA  (RALOXIFENE) [Concomitant]
     Indication: OSTEOPENIA
     Dosage: 60MG
     Route: 048
  6. PRESERVISION SUPPLEMENT [Concomitant]
     Indication: MACULAR DEGENERATION
     Route: 048
  7. MULTIVITAMIN [Concomitant]
     Indication: SUPPLEMENTATION THERAPY
     Route: 048
  8. BIOTIN [Concomitant]
     Route: 048
  9. NEUTROGENA FACE CREAM [Concomitant]
     Indication: THERAPEUTIC SKIN CARE TOPICAL
     Route: 061
  10. DOVE SOAP [Concomitant]
     Indication: THERAPEUTIC SKIN CARE TOPICAL
     Route: 061
  11. WITCH HAZEL [Concomitant]
     Indication: THERAPEUTIC SKIN CARE TOPICAL
     Route: 061
  12. NEUTRAGENA DEEP CLEAN CLEANSER [Concomitant]
     Indication: THERAPEUTIC SKIN CARE TOPICAL
     Route: 061

REACTIONS (4)
  - Condition aggravated [Not Recovered/Not Resolved]
  - Rash macular [Not Recovered/Not Resolved]
  - Erythema [Not Recovered/Not Resolved]
  - Skin burning sensation [Not Recovered/Not Resolved]
